FAERS Safety Report 5484430-5 (Version None)
Quarter: 2007Q4

REPORT INFORMATION
  Report Type: 
  Country: None (occurrence: None)
  Receive Date: 20071012
  Receipt Date: 20071003
  Transmission Date: 20080405
  Serious: Yes (Other)
  Sender: FDA-Public Use
  Company Number: US-ABBOTT-07P-163-0419234-00

PATIENT
  Sex: Female
  Weight: 108.1 kg

DRUGS (4)
  1. NIASPAN [Suspect]
     Indication: BLOOD CHOLESTEROL
     Route: 048
     Dates: start: 20060101
  2. COATED PDS [Suspect]
     Indication: BLOOD CHOLESTEROL
     Route: 048
  3. COATED PDS [Suspect]
     Route: 048
  4. HYDROCHLOROTHIAZIDE [Concomitant]
     Indication: HYPERTENSION

REACTIONS (5)
  - ERYTHEMA [None]
  - FLUSHING [None]
  - NEOPLASM MALIGNANT [None]
  - PAIN [None]
  - RECTAL CANCER [None]
